FAERS Safety Report 6697138-5 (Version None)
Quarter: 2010Q2

REPORT INFORMATION
  Report Type: 
  Country: None (occurrence: None)
  Receive Date: 20100426
  Receipt Date: 20100414
  Transmission Date: 20101027
  Serious: Yes (Other)
  Sender: FDA-Public Use
  Company Number: US-PFIZER INC-2010047437

PATIENT
  Sex: Female
  Weight: 97.052 kg

DRUGS (7)
  1. CHANTIX [Suspect]
     Indication: SMOKING CESSATION THERAPY
     Dosage: 1 MG, 2X/DAY
     Route: 048
     Dates: start: 20100310, end: 20100322
  2. MORPHINE [Concomitant]
     Indication: SURGERY
     Dosage: UNK
  3. OXYCODONE [Concomitant]
     Indication: SURGERY
     Dosage: UNK MG, UNK
     Route: 048
  4. FIORINAL W/CODEINE [Concomitant]
     Indication: HEADACHE
     Dosage: UNK MG, UNK
  5. SYNTHROID [Concomitant]
     Indication: THYROID DISORDER
  6. SOMA [Concomitant]
     Indication: MUSCLE SPASMS
  7. ALBUTEROL [Concomitant]
     Indication: CHRONIC OBSTRUCTIVE PULMONARY DISEASE

REACTIONS (6)
  - EYE PRURITUS [None]
  - FEELING DRUNK [None]
  - HYPERSENSITIVITY [None]
  - PRURITUS GENERALISED [None]
  - TREMOR [None]
  - URTICARIA [None]
